FAERS Safety Report 15407742 (Version 3)
Quarter: 2018Q4

REPORT INFORMATION
  Report Type: Spontaneous
  Country: AU (occurrence: AU)
  Receive Date: 20180920
  Receipt Date: 20181001
  Transmission Date: 20190204
  Serious: Yes (Death)
  Sender: FDA-Public Use
  Company Number: AU-PFIZER INC-2018375222

PATIENT
  Age: 75 Year
  Sex: Male

DRUGS (1)
  1. XYNTHA [Suspect]
     Active Substance: ANTIHEMOPHILIC FACTOR, HUMAN RECOMBINANT RESIDUES 743-1636 DELETED
     Indication: FACTOR VIII DEFICIENCY
     Dosage: 2000 IU, EVERY 2ND DAY (THREE TIMES A WEEK)
     Route: 042
     Dates: start: 2014

REACTIONS (3)
  - Malaise [Unknown]
  - Renal failure [Fatal]
  - Condition aggravated [Fatal]
